FAERS Safety Report 8820512 (Version 1)
Quarter: 2012Q4

REPORT INFORMATION
  Report Type: 
  Country: US (occurrence: US)
  Receive Date: 20121002
  Receipt Date: 20121002
  Transmission Date: 20130627
  Serious: Yes (Other)
  Sender: FDA-Public Use
  Company Number: US-COVIDIEN/TYCO HEALTHCARE/MALLINCKRODT-T201203439

PATIENT
  Age: 55 Year
  Sex: Male

DRUGS (3)
  1. EXALGO EXTENDED RELEASE [Suspect]
     Indication: NECK PAIN
     Dosage: 16 mg, took one tab
     Dates: start: 20120908, end: 20120908
  2. NUCYNTA [Concomitant]
     Indication: NECK PAIN
     Dosage: 100 mg, bid
     Dates: start: 201202, end: 20120907
  3. DIABETIC DRUG [Concomitant]
     Indication: DIABETES MELLITUS
     Dosage: UNK

REACTIONS (1)
  - Respiratory depression [Recovered/Resolved]
